FAERS Safety Report 9544211 (Version 1)
Quarter: 2013Q3

REPORT INFORMATION
  Report Type: Spontaneous
  Country: US (occurrence: US)
  Receive Date: 20130923
  Receipt Date: 20130923
  Transmission Date: 20140515
  Serious: No
  Sender: FDA-Public Use
  Company Number: US-ASTRAZENECA-2013SE67404

PATIENT
  Age: 68 Year
  Sex: Female
  Weight: 72.6 kg

DRUGS (4)
  1. ARIMIDEX [Suspect]
     Indication: BREAST CANCER
     Route: 048
     Dates: start: 20130811, end: 20130903
  2. ARIMIDEX [Suspect]
     Indication: BREAST CANCER
     Route: 048
  3. LISINOPRIL [Suspect]
     Indication: BLOOD PRESSURE
     Route: 048
  4. LIPITOR [Concomitant]
     Indication: BLOOD CHOLESTEROL

REACTIONS (8)
  - Eye irritation [Unknown]
  - Insomnia [Unknown]
  - Muscle spasms [Unknown]
  - Paraesthesia oral [Unknown]
  - Night sweats [Unknown]
  - Arthralgia [Unknown]
  - Dysgeusia [Unknown]
  - Fatigue [Unknown]
